FAERS Safety Report 8555702-2 (Version None)
Quarter: 2012Q3

REPORT INFORMATION
  Report Type: 
  Country: None (occurrence: None)
  Receive Date: 20120801
  Receipt Date: 20120725
  Transmission Date: 20120928
  Serious: Yes (Hospitalization, Other)
  Sender: FDA-Public Use
  Company Number: US-AMGEN-USASP2012029347

PATIENT
  Age: 49 Year
  Sex: Male

DRUGS (1)
  1. ENBREL [Suspect]
     Indication: PSORIASIS
     Dosage: 50 MG, QWK
     Dates: start: 20070501

REACTIONS (6)
  - GRAND MAL CONVULSION [None]
  - CONVULSION [None]
  - HYDROCEPHALUS [None]
  - AMNESIA [None]
  - VISUAL IMPAIRMENT [None]
  - DEPRESSION [None]
